FAERS Safety Report 18626168 (Version 2)
Quarter: 2021Q3

REPORT INFORMATION
  Report Type: Report from Study
  Country: US (occurrence: US)
  Receive Date: 20201217
  Receipt Date: 20210806
  Transmission Date: 20211014
  Serious: No
  Sender: FDA-Public Use
  Company Number: US-GW PHARMA-202012USGW04317

PATIENT

DRUGS (4)
  1. EPIDIOLEX [Suspect]
     Active Substance: CANNABIDIOL
     Dosage: 3.71MG/KG, 100 MILLIGRAM, BID (7TH AND 8TH WEEK)
     Route: 048
     Dates: start: 202011, end: 202011
  2. EPIDIOLEX [Suspect]
     Active Substance: CANNABIDIOL
     Indication: PRODUCT USED FOR UNKNOWN INDICATION
     Dosage: 1.855 MG/KG, 50 MILLIGRAM, BID (1ST, 2ND, 3RD AND 4TH WEEK)
     Route: 048
     Dates: start: 20201002, end: 202010
  3. EPIDIOLEX [Suspect]
     Active Substance: CANNABIDIOL
     Dosage: 4.638 MG/KG, 250 MILLIGRAM, QD (150 MG AM AND 100 MG PM IN 9TH AND 10TH WEEK), 150 MG BID  FROM 11TH
     Route: 048
     Dates: start: 202011
  4. EPIDIOLEX [Suspect]
     Active Substance: CANNABIDIOL
     Dosage: 2.278MG/KG, 150 MILLIGRAM, QD (100 MG AM AND 50 MG PM IN 5TH AND 6TH WEEK)
     Route: 048
     Dates: start: 202010, end: 202011

REACTIONS (7)
  - Seizure [Unknown]
  - Feeling cold [Unknown]
  - Muscle rigidity [Unknown]
  - Tremor [Unknown]
  - Seizure [Unknown]
  - Seizure [Unknown]
  - Drug ineffective [Unknown]

NARRATIVE: CASE EVENT DATE: 20201002
